FAERS Safety Report 18798360 (Version 1)
Quarter: 2021Q1

REPORT INFORMATION
  Report Type: Spontaneous
  Country: US (occurrence: US)
  Receive Date: 20210128
  Receipt Date: 20210128
  Transmission Date: 20210419
  Serious: Yes (Disabling, Other)
  Sender: FDA-Public Use
  Company Number: US-REGENERON PHARMACEUTICALS, INC.-2021-14676

PATIENT

DRUGS (5)
  1. AVASTIN [Suspect]
     Active Substance: BEVACIZUMAB
     Indication: PRODUCT USED FOR UNKNOWN INDICATION
     Dosage: OS
  2. EYLEA [Suspect]
     Active Substance: AFLIBERCEPT
     Indication: MACULAR DEGENERATION
     Dosage: EARLY 2020, EVERY 7 WEEKS INTO LEFT EYE (OS)
     Route: 031
     Dates: start: 2020
  3. EYLEA [Suspect]
     Active Substance: AFLIBERCEPT
     Dosage: EVERY 7 WEEKS INTO RIGHT EYE (OD)
     Route: 031
     Dates: start: 202010
  4. EYLEA [Suspect]
     Active Substance: AFLIBERCEPT
     Dosage: EVERY 7 WEEKS INTO LEFT EYE (OS)
     Route: 031
     Dates: start: 202008
  5. AVASTIN [Suspect]
     Active Substance: BEVACIZUMAB
     Dosage: OS
     Dates: start: 2020, end: 2020

REACTIONS (6)
  - Fatigue [Unknown]
  - Memory impairment [Unknown]
  - Injection site discomfort [Unknown]
  - Blindness transient [Unknown]
  - Weight decreased [Unknown]
  - Hair texture abnormal [Unknown]

NARRATIVE: CASE EVENT DATE: 202007
